FAERS Safety Report 15101229 (Version 2)
Quarter: 2018Q3

REPORT INFORMATION
  Report Type: Report from Study
  Country: IL (occurrence: IL)
  Receive Date: 20180703
  Receipt Date: 20180712
  Transmission Date: 20181010
  Serious: Yes (Death)
  Sender: FDA-Public Use
  Company Number: PHHY2018IL035969

PATIENT
  Sex: Male
  Weight: 40 kg

DRUGS (2)
  1. SORAFENIB [Suspect]
     Active Substance: SORAFENIB
     Indication: OSTEOSARCOMA
     Dosage: 200 MG, UNK
     Route: 065
     Dates: start: 20171127
  2. AFINITOR [Suspect]
     Active Substance: EVEROLIMUS
     Indication: OSTEOSARCOMA
     Dosage: 2.5 MG, QD
     Route: 048
     Dates: start: 20171127

REACTIONS (2)
  - Malignant neoplasm progression [Fatal]
  - Osteosarcoma [Fatal]
